FAERS Safety Report 20863231 (Version 2)
Quarter: 2022Q2

REPORT INFORMATION
  Report Type: Spontaneous
  Country: LT (occurrence: LT)
  Receive Date: 20220523
  Receipt Date: 20220614
  Transmission Date: 20220721
  Serious: Yes (Other)
  Sender: FDA-Public Use
  Company Number: LT-009507513-2205LTU005416

PATIENT
  Age: 62 Year
  Sex: Male

DRUGS (4)
  1. PEMBROLIZUMAB [Suspect]
     Active Substance: PEMBROLIZUMAB
     Indication: Lung adenocarcinoma
     Dosage: UNK UNK, Q3W
     Dates: start: 20210916
  2. PEMBROLIZUMAB [Suspect]
     Active Substance: PEMBROLIZUMAB
     Dosage: UNK UNK, EVERY 6 WEEKS
  3. CARBOPLATIN [Suspect]
     Active Substance: CARBOPLATIN
     Dosage: UNK
     Dates: start: 20210916
  4. PEMETREXED [Suspect]
     Active Substance: PEMETREXED
     Dosage: UNK
     Dates: start: 20210916

REACTIONS (3)
  - Tumour flare [Unknown]
  - Therapy partial responder [Unknown]
  - Anaemia [Unknown]

NARRATIVE: CASE EVENT DATE: 20211201
